FAERS Safety Report 18636303 (Version 1)
Quarter: 2020Q4

REPORT INFORMATION
  Report Type: Spontaneous
  Country: US (occurrence: US)
  Receive Date: 20201218
  Receipt Date: 20201218
  Transmission Date: 20210114
  Serious: No
  Sender: FDA-Public Use
  Company Number: US-ASTRAZENECA-2020SF63439

PATIENT
  Sex: Female

DRUGS (2)
  1. NEXIUM GENERIC [Suspect]
     Active Substance: ESOMEPRAZOLE
     Indication: DYSPEPSIA
     Route: 048
  2. NEXIUM GENERIC [Suspect]
     Active Substance: ESOMEPRAZOLE
     Indication: GASTROOESOPHAGEAL REFLUX DISEASE
     Route: 048

REACTIONS (5)
  - Muscle spasms [Unknown]
  - Vitamin B12 deficiency [Unknown]
  - Off label use [Unknown]
  - Dyspepsia [Unknown]
  - Anxiety [Unknown]
